FAERS Safety Report 5307570-X (Version None)
Quarter: 2007Q2

REPORT INFORMATION
  Report Type: 
  Country: None (occurrence: None)
  Receive Date: 20070425
  Receipt Date: 20070418
  Transmission Date: 20071010
  Serious: Yes (Hospitalization, Other)
  Sender: FDA-Public Use
  Company Number: US-PFIZER INC-2007031528

PATIENT
  Sex: Female
  Weight: 59 kg

DRUGS (6)
  1. ZOLOFT [Suspect]
     Indication: OBSESSIVE-COMPULSIVE DISORDER
     Dates: start: 20050101, end: 20070401
  2. ZOLOFT [Suspect]
     Indication: ABNORMAL BEHAVIOUR
  3. CLONIDINE [Concomitant]
  4. SEROQUEL [Concomitant]
  5. LAMICTAL [Concomitant]
  6. STRATTERA [Concomitant]

REACTIONS (3)
  - DYSKINESIA [None]
  - ENERGY INCREASED [None]
  - MANIA [None]
